FAERS Safety Report 5781637-4 (Version None)
Quarter: 2008Q2

REPORT INFORMATION
  Report Type: 
  Country: None (occurrence: None)
  Receive Date: 20080623
  Receipt Date: 20080526
  Transmission Date: 20081010
  Serious: No
  Sender: FDA-Public Use
  Company Number: US-BAYER-200823678NA

PATIENT
  Age: 69 Year
  Sex: Male

DRUGS (6)
  1. LEVITRA [Suspect]
     Indication: ERECTILE DYSFUNCTION
     Dosage: TOTAL DAILY DOSE: 5 MG  UNIT DOSE: 20 MG
     Route: 048
     Dates: start: 20080520
  2. AVODART [Concomitant]
     Indication: PROSTATOMEGALY
     Dosage: TOTAL DAILY DOSE: 0.5 MG
     Route: 048
     Dates: start: 20060101, end: 20080520
  3. AVODART [Concomitant]
     Dosage: TOTAL DAILY DOSE: 0.5 MG
     Route: 048
     Dates: start: 20080520
  4. FLOMAX [Concomitant]
     Indication: URINARY RETENTION
     Dosage: TOTAL DAILY DOSE: 0.4 MG
     Route: 048
     Dates: start: 20060101
  5. NEXIUM [Concomitant]
     Indication: GASTROOESOPHAGEAL REFLUX DISEASE
     Dosage: TOTAL DAILY DOSE: 40 MG
     Route: 048
     Dates: start: 20070101
  6. TRAVATAN [Concomitant]
     Indication: GLAUCOMA
     Dosage: TOTAL DAILY DOSE: 2 GTT
     Route: 047
     Dates: start: 20050101

REACTIONS (2)
  - BURNING SENSATION [None]
  - ERECTILE DYSFUNCTION [None]
